FAERS Safety Report 6422658-8 (Version None)
Quarter: 2009Q4

REPORT INFORMATION
  Report Type: 
  Country: None (occurrence: None)
  Receive Date: 20091102
  Receipt Date: 20091021
  Transmission Date: 20100525
  Serious: No
  Sender: FDA-Public Use
  Company Number: CA-JNJFOC-20091006967

PATIENT
  Age: 44 Year
  Sex: Female

DRUGS (3)
  1. DURAGESIC-100 [Suspect]
     Indication: PAIN
     Route: 062
     Dates: start: 20091017
  2. DILAUDID [Concomitant]
     Route: 048
  3. DILAUDID [Concomitant]
     Route: 048

REACTIONS (3)
  - BREAKTHROUGH PAIN [None]
  - DRUG INEFFECTIVE [None]
  - INCORRECT DRUG ADMINISTRATION DURATION [None]
